FAERS Safety Report 5718684-4 (Version None)
Quarter: 2008Q2

REPORT INFORMATION
  Report Type: 
  Country: None (occurrence: None)
  Receive Date: 20080425
  Receipt Date: 20080417
  Transmission Date: 20081010
  Serious: Yes (Other)
  Sender: FDA-Public Use
  Company Number: FR-ABBOTT-08P-056-0448059-00

PATIENT
  Age: 25 Year
  Sex: Male

DRUGS (2)
  1. DEPAKENE [Suspect]
     Indication: DRUG USE FOR UNKNOWN INDICATION
     Dosage: 2400MG DAILY (LOW DOSE)
     Route: 048
     Dates: end: 20080101
  2. DEPAKENE [Suspect]
     Route: 048
     Dates: start: 20080101

REACTIONS (4)
  - AMMONIA INCREASED [None]
  - SOMNOLENCE [None]
  - TOXIC ENCEPHALOPATHY [None]
  - TREMOR [None]
